FAERS Safety Report 22945783 (Version 2)
Quarter: 2023Q4

REPORT INFORMATION
  Report Type: Report from Study
  Country: US (occurrence: US)
  Receive Date: 20230914
  Receipt Date: 20231220
  Transmission Date: 20240110
  Serious: Yes (Hospitalization, Other)
  Sender: FDA-Public Use
  Company Number: US-ABBVIE-5405157

PATIENT
  Sex: Female

DRUGS (2)
  1. RINVOQ [Suspect]
     Active Substance: UPADACITINIB
     Indication: Rheumatoid arthritis
     Dosage: FORM STRENGTH-15 MG?ER
     Route: 048
     Dates: start: 202304, end: 202308
  2. RINVOQ [Suspect]
     Active Substance: UPADACITINIB
     Indication: Rheumatoid arthritis
     Dosage: FORM STRENGTH-15 MG ER, FIRST ADMIN DATE 2023
     Route: 048
     Dates: end: 202311

REACTIONS (8)
  - Loss of consciousness [Not Recovered/Not Resolved]
  - Unresponsive to stimuli [Unknown]
  - Rheumatoid arthritis [Not Recovered/Not Resolved]
  - Dehydration [Unknown]
  - Oxygen saturation decreased [Recovering/Resolving]
  - Coma [Unknown]
  - Respiratory disorder [Unknown]
  - Sinusitis [Unknown]

NARRATIVE: CASE EVENT DATE: 20230101
